FAERS Safety Report 4819968-4 (Version None)
Quarter: 2005Q4

REPORT INFORMATION
  Report Type: 
  Country: None (occurrence: None)
  Receive Date: 20051102
  Receipt Date: 20051020
  Transmission Date: 20060501
  Serious: Yes (Hospitalization)
  Sender: FDA-Public Use
  Company Number: S05-FRA-04160-01

PATIENT
  Age: 83 Year
  Sex: Female

DRUGS (4)
  1. CITALOPRAM HYDROBROMIDE [Suspect]
     Dosage: 10 MG QD PO
     Route: 048
     Dates: end: 20050923
  2. HYTACAND [Suspect]
     Dosage: 16 MG QD PO
     Route: 048
     Dates: end: 20050927
  3. TENORMIN [Concomitant]
  4. CALTRATE (CALCIUM CARBONATE) [Concomitant]

REACTIONS (3)
  - CONFUSIONAL STATE [None]
  - HYPONATRAEMIA [None]
  - HYPOVOLAEMIA [None]
